FAERS Safety Report 9992113 (Version 2)
Quarter: 2014Q1

REPORT INFORMATION
  Report Type: Spontaneous
  Country: GB (occurrence: GB)
  Receive Date: 20140310
  Receipt Date: 20140310
  Transmission Date: 20141002
  Serious: Yes (Hospitalization, Other)
  Sender: FDA-Public Use
  Company Number: PHFR2013GB006763

PATIENT
  Age: 66 Year
  Sex: Male
  Weight: 55 kg

DRUGS (3)
  1. TERBINAFINE [Suspect]
     Indication: ONYCHOMYCOSIS
     Dosage: 250 MG, UNK
     Route: 048
     Dates: start: 20130924, end: 20131114
  2. COVONIA BRONCHIAL [Concomitant]
     Dosage: UNK UKN, UNK
  3. IBUPROFEN [Concomitant]
     Dosage: UNK UKN, UNK

REACTIONS (4)
  - Pancreatitis [Not Recovered/Not Resolved]
  - Cholelithiasis [Unknown]
  - Gastrointestinal inflammation [Unknown]
  - Liver function test abnormal [Unknown]
